FAERS Safety Report 9208531 (Version 4)
Quarter: 2013Q2

REPORT INFORMATION
  Report Type: Spontaneous
  Country: US (occurrence: US)
  Receive Date: 20130404
  Receipt Date: 20130521
  Transmission Date: 20140414
  Serious: No
  Sender: FDA-Public Use
  Company Number: US-BIOGENIDEC-2013BI028703

PATIENT
  Age: 41 Year
  Sex: Female

DRUGS (2)
  1. AVONEX [Suspect]
     Indication: MULTIPLE SCLEROSIS
     Route: 030
     Dates: start: 20130215, end: 201303
  2. AVONEX [Suspect]
     Indication: MULTIPLE SCLEROSIS
     Route: 030
     Dates: start: 201303

REACTIONS (12)
  - Injection site pain [Unknown]
  - Contusion [Unknown]
  - Injection site bruising [Recovered/Resolved]
  - Hypotonia [Not Recovered/Not Resolved]
  - Speech disorder [Not Recovered/Not Resolved]
  - Retching [Recovered/Resolved]
  - Tachyphrenia [Not Recovered/Not Resolved]
  - Pain in extremity [Not Recovered/Not Resolved]
  - Aphagia [Not Recovered/Not Resolved]
  - Injury associated with device [Recovered/Resolved]
  - Haemorrhage [Recovered/Resolved]
  - Psychogenic pain disorder [Recovered/Resolved]
